FAERS Safety Report 5304396-8 (Version None)
Quarter: 2007Q2

REPORT INFORMATION
  Report Type: 
  Country: None (occurrence: None)
  Receive Date: 20070413
  Receipt Date: 20070404
  Transmission Date: 20071010
  Serious: Yes (Hospitalization)
  Sender: FDA-Public Use
  Company Number: WAES 0704USA00597

PATIENT
  Age: 60 Year
  Sex: Female

DRUGS (1)
  1. DECADRON [Suspect]
     Dosage: PO
     Route: 046

REACTIONS (4)
  - ANOREXIA [None]
  - FATIGUE [None]
  - HYPERGLYCAEMIA [None]
  - MUSCULAR WEAKNESS [None]
